FAERS Safety Report 4496238-8 (Version None)
Quarter: 2004Q4

REPORT INFORMATION
  Report Type: 
  Country: None (occurrence: None)
  Receive Date: 20041109
  Receipt Date: 20041028
  Transmission Date: 20050328
  Serious: Yes (Death)
  Sender: FDA-Public Use
  Company Number: US-JNJFOC-20041100105

PATIENT
  Sex: Male

DRUGS (4)
  1. INFLIXIMAB [Suspect]
     Indication: RHEUMATOID ARTHRITIS
     Route: 042
  2. MOTRIN [Concomitant]
  3. PREDNISONE [Concomitant]
  4. FOLIC ACID [Concomitant]

REACTIONS (2)
  - CARDIAC ARREST [None]
  - GASTROINTESTINAL HAEMORRHAGE [None]
